FAERS Safety Report 8849107 (Version 3)
Quarter: 2013Q3

REPORT INFORMATION
  Report Type: Spontaneous
  Country: US (occurrence: US)
  Receive Date: 20121019
  Receipt Date: 20130920
  Transmission Date: 20140515
  Serious: Yes (Hospitalization)
  Sender: FDA-Public Use
  Company Number: US-BAYER-2012-106488

PATIENT
  Age: 28 Year
  Sex: Female

DRUGS (16)
  1. YASMIN [Suspect]
  2. OCELLA [Suspect]
  3. LEVAQUIN [Concomitant]
  4. EC-NAPROSYN [Concomitant]
  5. ULTRAM [Concomitant]
  6. DILAUDID [Concomitant]
  7. ZOFRAN [Concomitant]
  8. LIBRAX [Concomitant]
     Indication: BILIARY DYSKINESIA
  9. FERROUS SULFATE [Concomitant]
     Dosage: 325 MG, UNK
  10. ROCEPHIN [Concomitant]
     Indication: PYREXIA
  11. XANAX [Concomitant]
     Dosage: 0.25 MG, UNK
  12. LORTAB [Concomitant]
     Dosage: 7.5 MG, UNK
  13. LORTAB [Concomitant]
     Dosage: 500 MG, UNK
  14. AZITHROMYCIN [Concomitant]
     Dosage: 250 MG, UNK
  15. HYDROMET [Concomitant]
  16. PREDNISONE [Concomitant]
     Dosage: 20 MG, UNK

REACTIONS (2)
  - Pulmonary embolism [Recovered/Resolved]
  - Cholecystitis chronic [None]
